FAERS Safety Report 7575019-2 (Version None)
Quarter: 2011Q2

REPORT INFORMATION
  Report Type: 
  Country: None (occurrence: None)
  Receive Date: 20110627
  Receipt Date: 20090627
  Transmission Date: 20111010
  Serious: Yes (Other)
  Sender: FDA-Public Use
  Company Number: US-BAYER-200924399NA

PATIENT
  Age: 70 Year
  Sex: Male
  Weight: 75 kg

DRUGS (53)
  1. ASPIRIN [Concomitant]
     Dosage: 81 MG, QD
     Route: 048
  2. METOPROLOL TARTRATE [Concomitant]
     Dosage: 25 MG, QD
     Route: 048
     Dates: end: 20050101
  3. DARVOCET-N 50 [Concomitant]
     Dosage: 100-650 MG EVERY 8 HOURS AS NEEDED
     Route: 048
  4. MIDAZOLAM HCL [Concomitant]
     Dosage: 1 MG/ML, UNK
     Route: 042
     Dates: start: 20041230
  5. INSULIN [Concomitant]
     Dosage: UNK
     Route: 042
     Dates: start: 20041230
  6. CEFAZOLIN [Concomitant]
     Dosage: 1 GM, UNK
     Route: 042
     Dates: start: 20041231
  7. MULTI-VITAMIN [Concomitant]
     Dosage: 1 DAILY IN AM, UNK
     Route: 048
  8. EICOSAPENTAENOIC ACID [Concomitant]
     Dosage: 180 MG, BID
     Route: 048
     Dates: start: 20050101
  9. LIDOCAINE [Concomitant]
     Dosage: UNK
     Route: 042
     Dates: start: 20041230
  10. PANCURONIUM [Concomitant]
     Dosage: 20 ML, UNK
     Route: 042
     Dates: start: 20041231
  11. ANCEF [Concomitant]
     Dosage: 2 GM, UNK
     Route: 042
     Dates: start: 20041231
  12. LEVARTERENOL [Concomitant]
     Dosage: 4 ML, UNK
     Route: 042
     Dates: start: 20041231
  13. TRASYLOL [Suspect]
     Indication: CORONARY ARTERY BYPASS
     Dosage: 200 ML, UNK
     Route: 042
     Dates: start: 20041231, end: 20041231
  14. TRASYLOL [Suspect]
     Dosage: UNK
  15. HEPARIN [Concomitant]
  16. VERSED [Concomitant]
  17. LEVOTHYROXINE SODIUM [Concomitant]
     Dosage: 175 MCG QD
     Dates: start: 20050101
  18. TOPROL-XL [Concomitant]
     Dosage: 50 MG, QD
     Route: 048
     Dates: start: 20050101
  19. PAPAVERINE [Concomitant]
     Dosage: 30 MG, UNK
     Route: 042
     Dates: start: 20041231
  20. FENOLDOPAM [Concomitant]
     Dosage: 10 MG, UNK
     Dates: start: 20041231
  21. LISINOPRIL [Concomitant]
     Dosage: 10 MG, QD
     Route: 048
     Dates: start: 20050101
  22. TRAMADOL HCL [Concomitant]
     Dosage: 50 MG, BID
     Route: 048
  23. CHLORHEXIDINE GLUCONATE [Concomitant]
     Dosage: UNK
     Route: 042
     Dates: start: 20041230
  24. POTASSIUM CHLORIDE [Concomitant]
     Dosage: 80 MEQ, UNK
     Route: 042
     Dates: start: 20041231
  25. DIPHENHYDRAMINE HCL [Concomitant]
     Dosage: 50 MG, UNK
     Dates: start: 20041231
  26. MANNITOL [Concomitant]
     Dosage: 100 ML, UNK
     Route: 042
     Dates: start: 20041231
  27. PROTAMINE SULFATE [Concomitant]
     Dosage: 50 MG X 6, UNK
     Dates: start: 20041231
  28. GLIMEPIRIDE [Concomitant]
     Dosage: 16 MG, UNK
     Route: 048
     Dates: start: 20041231
  29. TRASYLOL [Suspect]
     Dosage: 50 ML/HR
     Route: 042
     Dates: start: 20041231, end: 20041231
  30. NOREPINEPHRINE BITARTRATE [Concomitant]
  31. DOCOSAHEXANOIC ACID [Concomitant]
     Dosage: 120 MG, BID
     Route: 048
     Dates: start: 20050101
  32. PROPOFOL [Concomitant]
     Dosage: 10 MG/ML, UNK
     Route: 042
     Dates: start: 20041231
  33. METOPROLOL TARTRATE [Concomitant]
     Dosage: 50 MG, UNK
     Route: 048
     Dates: start: 20041231
  34. MORPHINE SULFATE [Concomitant]
     Dosage: 10 MG, UNK
     Route: 042
     Dates: start: 20041231
  35. GLYCOPYRROLATE [Concomitant]
     Dosage: 1 ML, UNK
     Route: 042
     Dates: start: 20041231
  36. PLAVIX [Concomitant]
     Dosage: 75 MG, QD
     Route: 048
     Dates: start: 20030101, end: 20050101
  37. PAXIL [Concomitant]
     Dosage: 40 MG, QD
     Route: 048
     Dates: start: 20010101, end: 20050101
  38. NAPROXEN [Concomitant]
     Dosage: 500 MG, BID
     Route: 048
     Dates: start: 20050101, end: 20050101
  39. LOVAZA [Concomitant]
     Dosage: 1000 MG, QD
     Route: 048
  40. TEMAZEPAM [Concomitant]
     Dosage: 30 MG, UNK
     Route: 048
     Dates: start: 20041231
  41. METOCLOPRAMIDE [Concomitant]
     Dosage: 2 ML, UNK
     Route: 042
     Dates: start: 20041231
  42. RED BLOOD CELLS [Concomitant]
     Dosage: 2 U, UNK
     Dates: start: 20041231
  43. LEVOTHYROXINE SODIUM [Concomitant]
     Dosage: 200 MCG QD
     Route: 048
     Dates: start: 19940101, end: 20050101
  44. LIPITOR [Concomitant]
     Dosage: 40 MG, UNK
     Route: 048
     Dates: start: 20010101, end: 20050101
  45. TRICOR [Concomitant]
     Dosage: 145 MG, QD
     Route: 048
     Dates: start: 20050101
  46. PROSTIGMIN BROMIDE [Concomitant]
     Dosage: 10 ML, UNK
     Route: 042
     Dates: start: 20041231
  47. FUROSEMIDE [Concomitant]
     Dosage: 160 MG, UNK
     Route: 042
     Dates: start: 20041231
  48. FAMOTIDINE [Concomitant]
     Dosage: 6 ML, UNK
     Route: 042
     Dates: start: 20041231
  49. FENTANYL [Concomitant]
     Dosage: UNK
     Route: 042
     Dates: start: 20041230
  50. PAVULON [Concomitant]
  51. AMARYL [Concomitant]
     Dosage: 4 MG, QD
     Route: 048
     Dates: start: 20050101
  52. SODIUM BICARBONATE [Concomitant]
     Dosage: UNK
     Route: 042
     Dates: start: 20041231
  53. LOPRESOR SLOW RELEASE [Concomitant]
     Dosage: 50 MG, UNK
     Route: 048
     Dates: start: 20041230

REACTIONS (11)
  - RENAL INJURY [None]
  - EMOTIONAL DISTRESS [None]
  - PAIN [None]
  - RENAL FAILURE [None]
  - STRESS [None]
  - FEAR [None]
  - ANXIETY [None]
  - UNEVALUABLE EVENT [None]
  - ANHEDONIA [None]
  - INJURY [None]
  - RENAL IMPAIRMENT [None]
